FAERS Safety Report 9251090 (Version 1)
Quarter: 2013Q1

REPORT INFORMATION
  Report Type: Spontaneous
  Country: US (occurrence: None)
  Receive Date: 20130305
  Receipt Date: 20130305
  Transmission Date: 20140127
  Serious: Yes (Other)
  Sender: FDA-Public Use
  Company Number: 163-21880-12081580

PATIENT
  Age: 70 Year
  Sex: Female
  Weight: 79 kg

DRUGS (6)
  1. REVLIMID [Suspect]
     Indication: PLASMA CELL MYELOMA
     Dosage: 10 MG, 21 IN 21 D, PO
     Route: 048
     Dates: start: 20080117
  2. REVLIMID [Suspect]
     Indication: PRODUCT USED FOR UNKNOWN INDICATION
     Dosage: 10 MG, 21 IN 21 D, PO
     Route: 048
     Dates: start: 20080117
  3. DEXAMETHASONE [Suspect]
  4. CYTOXAN [Suspect]
     Route: 048
  5. CENTRUM SILVER (CENTRUM SILVER) (UNKNOWN) [Concomitant]
  6. WARFARIN (WARFARIN) (UNKNOWN) [Concomitant]

REACTIONS (1)
  - Full blood count decreased [None]
